FAERS Safety Report 4999556-X (Version None)
Quarter: 2006Q2

REPORT INFORMATION
  Report Type: 
  Country: None (occurrence: None)
  Receive Date: 20060511
  Receipt Date: 20051114
  Transmission Date: 20061013
  Serious: Yes (Hospitalization, Disabling, Other)
  Sender: FDA-Public Use
  Company Number: US-MERCK-0511USA02464

PATIENT
  Sex: Female
  Weight: 132 kg

DRUGS (1)
  1. VIOXX [Suspect]
     Indication: BACK DISORDER
     Route: 048
     Dates: end: 20040101

REACTIONS (12)
  - CARDIAC FAILURE CONGESTIVE [None]
  - CARDIAC INFECTION [None]
  - CEREBROVASCULAR ACCIDENT [None]
  - DEEP VEIN THROMBOSIS [None]
  - MENTAL DISORDER [None]
  - MYOCARDIAL INFARCTION [None]
  - OVARIAN CANCER [None]
  - PULMONARY EMBOLISM [None]
  - RENAL DISORDER [None]
  - RENAL FAILURE [None]
  - STRESS [None]
  - THROMBOSIS [None]
